FAERS Safety Report 16698298 (Version 2)
Quarter: 2019Q3

REPORT INFORMATION
  Report Type: Spontaneous
  Country: US (occurrence: US)
  Receive Date: 20190813
  Receipt Date: 20190821
  Transmission Date: 20191004
  Serious: Yes (Life-Threatening, Hospitalization)
  Sender: FDA-Public Use
  Company Number: US-TEVA-2019-US-1090554

PATIENT
  Age: 49 Year
  Sex: Male

DRUGS (3)
  1. LABETALOL [Suspect]
     Active Substance: LABETALOL\LABETALOL HYDROCHLORIDE
     Indication: HYPERTENSIVE URGENCY
     Dosage: MULTIPLE DOSES
     Route: 042
  2. YOHIMBINE [Suspect]
     Active Substance: YOHIMBINE
     Indication: SEXUAL DYSFUNCTION
     Dosage: 1 OR 2 CAPSULES ONCE OR TWICE DAILY
     Route: 065
  3. CLONIDINE. [Suspect]
     Active Substance: CLONIDINE
     Indication: HYPERTENSIVE URGENCY
     Dosage: MULTIPLE DOSES
     Route: 048

REACTIONS (3)
  - Drug ineffective [Recovering/Resolving]
  - Hypertensive urgency [Recovering/Resolving]
  - Hypertension [Recovering/Resolving]
